FAERS Safety Report 11549211 (Version 1)
Quarter: 2015Q3

REPORT INFORMATION
  Report Type: Spontaneous
  Country: US (occurrence: US)
  Receive Date: 20150903
  Receipt Date: 20150903
  Transmission Date: 20151125
  Serious: No
  Sender: FDA-Public Use
  Company Number: US-ELI_LILLY_AND_COMPANY-US201304003365

PATIENT
  Age: 19 Year
  Sex: Female
  Weight: 42.63 kg

DRUGS (1)
  1. HUMALOG [Suspect]
     Active Substance: INSULIN LISPRO
     Dosage: UNK, UNKNOWN

REACTIONS (3)
  - Blood glucose increased [Unknown]
  - Scar [Not Recovered/Not Resolved]
  - Maternal exposure during pregnancy [Recovered/Resolved]

NARRATIVE: CASE EVENT DATE: 20130405
